FAERS Safety Report 10668533 (Version 5)
Quarter: 2017Q4

REPORT INFORMATION
  Report Type: Report from Study
  Country: ES (occurrence: ES)
  Receive Date: 20141222
  Receipt Date: 20171027
  Transmission Date: 20180320
  Serious: Yes (Death, Life-Threatening, Hospitalization)
  Sender: FDA-Public Use
  Company Number: PHHO2014ES012970

PATIENT
  Age: 71 Year
  Sex: Male
  Weight: 46.5 kg

DRUGS (6)
  1. AMLODIPINE [Concomitant]
     Active Substance: AMLODIPINE BESYLATE
     Indication: HYPERTENSION
     Dosage: UNK
     Route: 065
  2. RAD 666 / RAD 001A [Suspect]
     Active Substance: EVEROLIMUS
     Indication: NEUROENDOCRINE CARCINOMA
     Dosage: 10 MG, DAILY
     Route: 048
     Dates: start: 20140715, end: 20140921
  3. ENALAPRIL [Concomitant]
     Active Substance: ENALAPRIL
     Indication: DYSLIPIDAEMIA
     Dosage: UNK
     Route: 065
  4. LANTUS [Concomitant]
     Active Substance: INSULIN GLARGINE
     Indication: HYPERGLYCAEMIA
     Dosage: 6 IU, PER 24 HOURS
     Route: 065
     Dates: start: 201408
  5. PASIREOTIDE. [Suspect]
     Active Substance: PASIREOTIDE
     Indication: NEUROENDOCRINE CARCINOMA
     Dosage: 60 MG, /28 DAYS
     Route: 030
     Dates: start: 20140715, end: 20140911
  6. ACETATO DE MEGESTROL [Concomitant]
     Indication: DECREASED APPETITE
     Dosage: 160 MG, QD
     Route: 065

REACTIONS (4)
  - Diarrhoea [Recovered/Resolved]
  - Diarrhoea [Fatal]
  - Escherichia sepsis [Fatal]
  - Vomiting [Recovered/Resolved]

NARRATIVE: CASE EVENT DATE: 20140912
